FAERS Safety Report 10414194 (Version 5)
Quarter: 2014Q4

REPORT INFORMATION
  Report Type: Report from Study
  Country: DE (occurrence: DE)
  Receive Date: 20140827
  Receipt Date: 20141024
  Transmission Date: 20150528
  Serious: Yes (Death, Hospitalization, Other)
  Sender: FDA-Public Use
  Company Number: DE-GILEAD-2014-0111423

PATIENT
  Age: 82 Year
  Sex: Female
  Weight: 59 kg

DRUGS (14)
  1. COTRIM 960 [Concomitant]
     Indication: INFECTION PROPHYLAXIS
     Dosage: UNK
     Dates: end: 20140801
  2. ACIC 400 [Concomitant]
     Indication: INFECTION PROPHYLAXIS
     Dosage: UNK
     Dates: end: 20140801
  3. MCP                                /00041902/ [Concomitant]
     Indication: NAUSEA
     Dosage: UNK
     Dates: start: 20140206
  4. MOVICOL                            /01749801/ [Concomitant]
     Indication: FAECES HARD
     Dosage: UNK
     Dates: start: 20140325, end: 201407
  5. PASPERTIN                          /00041902/ [Concomitant]
     Active Substance: METOCLOPRAMIDE HYDROCHLORIDE
     Indication: NAUSEA
     Dosage: UNK
     Dates: start: 20140325
  6. EXFORGE [Concomitant]
     Active Substance: AMLODIPINE BESYLATE\VALSARTAN
     Indication: HYPERTENSION
     Dosage: UNK
     Dates: end: 20140801
  7. CLEXANE [Concomitant]
     Active Substance: ENOXAPARIN SODIUM
     Indication: DEEP VEIN THROMBOSIS
     Dosage: UNK
  8. NOVALGIN DROPS [Concomitant]
     Indication: ABDOMINAL PAIN
     Dosage: UNK
     Dates: start: 20140206
  9. THYRONAJOD [Concomitant]
     Active Substance: LEVOTHYROXINE SODIUM\POTASSIUM IODIDE
     Indication: PROPHYLAXIS
     Dosage: UNK
     Dates: end: 20140801
  10. OMEPRAZOLE. [Concomitant]
     Active Substance: OMEPRAZOLE
     Indication: PROPHYLAXIS
     Dosage: UNK
  11. ALLOPURINOL. [Concomitant]
     Active Substance: ALLOPURINOL
     Indication: PROPHYLAXIS
     Dosage: UNK
     Dates: end: 20140801
  12. JONOSTERIL                         /00351401/ [Concomitant]
     Indication: PROPHYLAXIS AGAINST DEHYDRATION
     Dosage: UNK
     Dates: start: 20140805, end: 20140807
  13. FOSTER                             /06206901/ [Concomitant]
     Indication: CHRONIC OBSTRUCTIVE PULMONARY DISEASE
     Dosage: UNK
  14. IDELALISIB [Suspect]
     Active Substance: IDELALISIB
     Indication: CHRONIC LYMPHOCYTIC LEUKAEMIA
     Dosage: 100 MG, BID
     Route: 048
     Dates: start: 20130729, end: 20140730

REACTIONS (3)
  - Cardiopulmonary failure [Fatal]
  - Diverticulitis [Recovered/Resolved]
  - Large intestinal stenosis [Recovered/Resolved]

NARRATIVE: CASE EVENT DATE: 20140805
